FAERS Safety Report 8984459 (Version 2)
Quarter: 2013Q1

REPORT INFORMATION
  Report Type: Spontaneous
  Country: US (occurrence: US)
  Receive Date: 20121225
  Receipt Date: 20130205
  Transmission Date: 20140127
  Serious: Yes (Other)
  Sender: FDA-Public Use
  Company Number: US-SANOFI-AVENTIS-2012SA091046

PATIENT
  Age: 69 Year
  Sex: Female
  Weight: 88.85 kg

DRUGS (7)
  1. LANTUS SOLOSTAR [Suspect]
     Indication: TYPE 2 DIABETES MELLITUS
     Dosage: DOSE:37 UNIT(S)
     Route: 058
  2. SOLOSTAR [Suspect]
     Indication: TYPE 2 DIABETES MELLITUS
     Dates: start: 2000
  3. HUMALOG [Suspect]
     Indication: DIABETES MELLITUS
     Dosage: DOSE:20 UNIT(S)
     Route: 065
  4. METFORMIN [Concomitant]
     Indication: DIABETES MELLITUS
     Dosage: PER MEAL
  5. LISINOPRIL [Concomitant]
     Indication: DIABETES MELLITUS
  6. METOPROLOL [Concomitant]
     Indication: DIABETES MELLITUS
  7. CREON [Concomitant]
     Indication: DIABETES MELLITUS
     Dosage: PER MEAL

REACTIONS (2)
  - Macular degeneration [Unknown]
  - Visual impairment [Unknown]
